FAERS Safety Report 8022870-0 (Version None)
Quarter: 2012Q1

REPORT INFORMATION
  Report Type: 
  Country: None (occurrence: None)
  Receive Date: 20120104
  Receipt Date: 20111228
  Transmission Date: 20120608
  Serious: Yes (Death)
  Sender: FDA-Public Use
  Company Number: JP-ROCHE-1017853

PATIENT
  Sex: Male
  Weight: 69 kg

DRUGS (17)
  1. DOCETAXEL [Suspect]
     Route: 041
     Dates: start: 20111020, end: 20111020
  2. ALLOPURINOL [Concomitant]
     Indication: HYPERURICAEMIA
     Route: 048
  3. MUCOSTA [Concomitant]
     Indication: GASTRITIS PROPHYLAXIS
     Route: 048
     Dates: start: 20110401
  4. METHYLPREDNISOLONE SODIUM SUCCINATE [Suspect]
     Indication: INTERSTITIAL LUNG DISEASE
     Route: 042
     Dates: start: 20111102, end: 20111104
  5. CARBOPLATIN [Concomitant]
     Indication: LUNG ADENOCARCINOMA METASTATIC
     Dosage: DOSAGE IS UNCERTAIN.
     Route: 041
     Dates: start: 20110421, end: 20110704
  6. PROMAC (JAPAN) [Concomitant]
     Indication: DYSGEUSIA
     Route: 048
     Dates: start: 20110401
  7. AVASTIN [Suspect]
     Indication: LUNG ADENOCARCINOMA METASTATIC
     Route: 041
     Dates: start: 20110421, end: 20110825
  8. PEMETREXED [Concomitant]
     Indication: LUNG ADENOCARCINOMA METASTATIC
     Dosage: DOSAGE IS UNCERTAIN.
     Route: 041
     Dates: start: 20110421, end: 20110704
  9. METFORMIN HCL [Concomitant]
     Indication: DIABETES MELLITUS
     Route: 048
     Dates: start: 20080101
  10. AVASTIN [Suspect]
     Route: 041
     Dates: start: 20110928, end: 20111020
  11. DOCETAXEL [Suspect]
     Indication: LUNG ADENOCARCINOMA METASTATIC
     Route: 041
     Dates: start: 20110928, end: 20110928
  12. METHYLPREDNISOLONE SODIUM SUCCINATE [Suspect]
     Route: 042
     Dates: start: 20111105, end: 20111107
  13. GLIMICRON [Concomitant]
     Indication: DIABETES MELLITUS
     Route: 048
     Dates: start: 20080101
  14. MUCODYNE [Concomitant]
     Indication: PRODUCTIVE COUGH
     Route: 048
     Dates: start: 20110401
  15. LOXONIN [Concomitant]
     Indication: CANCER PAIN
     Route: 048
     Dates: start: 20110401
  16. METHYLPREDNISOLONE SODIUM SUCCINATE [Suspect]
     Route: 042
     Dates: start: 20111108, end: 20111110
  17. DEPAS [Concomitant]
     Indication: INSOMNIA
     Route: 048

REACTIONS (4)
  - INTERSTITIAL LUNG DISEASE [None]
  - INFECTION [None]
  - ACUTE RESPIRATORY DISTRESS SYNDROME [None]
  - INTESTINAL PERFORATION [None]
